FAERS Safety Report 9943263 (Version 2)
Quarter: 2014Q2

REPORT INFORMATION
  Report Type: Spontaneous
  Country: DE (occurrence: DE)
  Receive Date: 20140303
  Receipt Date: 20140505
  Transmission Date: 20141212
  Serious: Yes (Hospitalization, Other)
  Sender: FDA-Public Use
  Company Number: PHHY2014DE025136

PATIENT
  Age: 34 Year
  Sex: Female
  Weight: 58 kg

DRUGS (1)
  1. EXTAVIA [Suspect]
     Dosage: 250 UG, UNK
     Route: 058

REACTIONS (5)
  - Appendicitis [Recovered/Resolved]
  - Hepatomegaly [Not Recovered/Not Resolved]
  - Hepatic steatosis [Not Recovered/Not Resolved]
  - Hepatic enzyme increased [Recovering/Resolving]
  - Insulin resistance [Unknown]
